FAERS Safety Report 7810930-6 (Version None)
Quarter: 2011Q4

REPORT INFORMATION
  Report Type: 
  Country: None (occurrence: None)
  Receive Date: 20111013
  Receipt Date: 20111010
  Transmission Date: 20120403
  Serious: No
  Sender: FDA-Public Use
  Company Number: US-PFIZER INC-2011209441

PATIENT
  Sex: Male
  Weight: 86.2 kg

DRUGS (7)
  1. NADOLOL [Concomitant]
     Dosage: 20 MG, UNK
     Route: 048
  2. SUTENT [Suspect]
     Dosage: 25 MG, 1X/DAY
     Route: 048
  3. XIFAXAN [Concomitant]
     Dosage: 550 MG, UNK
     Route: 048
  4. LEXAPRO [Concomitant]
     Dosage: 10 MG, UNK
     Route: 048
  5. LACTULOSE [Concomitant]
     Dosage: 20 GM/30
  6. PERCOCET [Concomitant]
     Dosage: 10-325 MG
     Route: 048
  7. NEXIUM [Concomitant]
     Dosage: 20 MG, UNK
     Route: 048

REACTIONS (10)
  - ERUCTATION [None]
  - DYSGEUSIA [None]
  - PLATELET COUNT DECREASED [None]
  - DIZZINESS [None]
  - NAUSEA [None]
  - SNEEZING [None]
  - DRY SKIN [None]
  - CONTUSION [None]
  - DIARRHOEA [None]
  - PRURITUS [None]
